FAERS Safety Report 5496302-0 (Version None)
Quarter: 2007Q3

REPORT INFORMATION
  Report Type: 
  Country: None (occurrence: None)
  Receive Date: 20070924
  Receipt Date: 20070924
  Transmission Date: 20080115
  Serious: No
  Sender: FDA-Public Use
  Company Number: None

PATIENT
  Age: 43 Year
  Sex: Female
  Weight: 90.7194 kg

DRUGS (1)
  1. ETONOGESTREL IMPLANT [Suspect]

REACTIONS (3)
  - INFLAMMATION [None]
  - PRURITUS [None]
  - URTICARIA [None]
